FAERS Safety Report 6857270-X (Version None)
Quarter: 2010Q3

REPORT INFORMATION
  Report Type: 
  Country: None (occurrence: None)
  Receive Date: 20100719
  Receipt Date: 20100610
  Transmission Date: 20110219
  Serious: No
  Sender: FDA-Public Use
  Company Number: US-BAXTER-2010BH003382

PATIENT
  Age: 48 Year
  Sex: Male
  Weight: 49 kg

DRUGS (2)
  1. HEPARIN SODIUM [Suspect]
     Indication: RENAL STONE REMOVAL
     Route: 042
     Dates: start: 20080601
  2. HEPARIN SODIUM [Suspect]
     Route: 058
     Dates: start: 20080601

REACTIONS (3)
  - HYPERSENSITIVITY [None]
  - HYPOTENSION [None]
  - PAIN [None]
